FAERS Safety Report 4362290-3 (Version None)
Quarter: 2004Q2

REPORT INFORMATION
  Report Type: 
  Country: None (occurrence: None)
  Receive Date: 20040520
  Receipt Date: 20040520
  Transmission Date: 20050107
  Serious: Yes (Hospitalization)
  Sender: FDA-Public Use
  Company Number: None

PATIENT
  Sex: Male
  Weight: 71.6683 kg

DRUGS (2)
  1. CLOPIDOGREL BISULFATE [Suspect]
  2. ASPIRIN [Suspect]

REACTIONS (1)
  - GASTROINTESTINAL HAEMORRHAGE [None]
